FAERS Safety Report 9960185 (Version 2)
Quarter: 2014Q1

REPORT INFORMATION
  Report Type: Report from Study
  Country: PR (occurrence: PR)
  Receive Date: 20140305
  Receipt Date: 20140305
  Transmission Date: 20141002
  Serious: Yes (Hospitalization, Other)
  Sender: FDA-Public Use
  Company Number: PR-ABBVIE-13P-131-1058839-00

PATIENT
  Age: 37 Year
  Sex: Male
  Weight: 77.18 kg

DRUGS (5)
  1. HUMIRA [Suspect]
     Indication: CROHN^S DISEASE
     Route: 058
     Dates: start: 2010, end: 201302
  2. HUMIRA [Suspect]
     Route: 058
     Dates: start: 201304, end: 201305
  3. HUMIRA [Suspect]
     Route: 058
     Dates: start: 201305
  4. KLONOPIN [Concomitant]
     Indication: ANXIETY
     Route: 048
  5. AMBIEN [Concomitant]
     Indication: INSOMNIA
     Route: 048

REACTIONS (1)
  - Small intestine operation [Recovered/Resolved]
